FAERS Safety Report 17749959 (Version 1)
Quarter: 2020Q2

REPORT INFORMATION
  Report Type: Report from Study
  Country: CR (occurrence: CR)
  Receive Date: 20200506
  Receipt Date: 20200506
  Transmission Date: 20200714
  Serious: Yes (Other)
  Sender: FDA-Public Use
  Company Number: NVSC2020CR121858

PATIENT
  Age: 94 Year
  Sex: Female

DRUGS (2)
  1. DIOVAN [Suspect]
     Active Substance: VALSARTAN
     Indication: PRODUCT USED FOR UNKNOWN INDICATION
     Dosage: 80 MG
     Route: 065
  2. DIOVAN [Suspect]
     Active Substance: VALSARTAN
     Dosage: 40 MG
     Route: 065

REACTIONS (6)
  - Diabetes mellitus [Unknown]
  - Cardiomyopathy [Unknown]
  - Arrhythmia [Unknown]
  - Hypertension [Unknown]
  - Angina pectoris [Unknown]
  - Wrong technique in product usage process [Unknown]
